FAERS Safety Report 17564753 (Version 6)
Quarter: 2021Q2

REPORT INFORMATION
  Report Type: Report from Study
  Country: CA (occurrence: CA)
  Receive Date: 20200320
  Receipt Date: 20210429
  Transmission Date: 20210716
  Serious: Yes (Other)
  Sender: FDA-Public Use
  Company Number: CA-SAMSUNG BIOEPIS-SB-2020-09772

PATIENT
  Age: 34 Year
  Sex: Female
  Weight: 55.7 kg

DRUGS (1)
  1. RENFLEXIS [Suspect]
     Active Substance: INFLIXIMAB-ABDA
     Indication: CROHN^S DISEASE
     Dosage: VIALS
     Route: 042
     Dates: start: 20191223

REACTIONS (5)
  - Nasopharyngitis [Unknown]
  - Road traffic accident [Unknown]
  - Cough [Unknown]
  - Nasal congestion [Unknown]
  - Off label use [Unknown]

NARRATIVE: CASE EVENT DATE: 20200313
